FAERS Safety Report 8086589-2 (Version None)
Quarter: 2012Q1

REPORT INFORMATION
  Report Type: 
  Country: None (occurrence: None)
  Receive Date: 20120128
  Receipt Date: 20110512
  Transmission Date: 20120608
  Serious: No
  Sender: FDA-Public Use
  Company Number: US-ABBOTT-11P-163-0725219-00

PATIENT
  Age: 21 Year
  Sex: Female

DRUGS (2)
  1. HUMIRA [Suspect]
     Indication: CROHN'S DISEASE
     Dosage: INITIAL LOADING DOSE
     Dates: start: 20110502
  2. VIREAD [Concomitant]
     Indication: HEPATITIS B

REACTIONS (1)
  - INJECTION SITE RASH [None]
